FAERS Safety Report 4440228-8 (Version None)
Quarter: 2004Q3

REPORT INFORMATION
  Report Type: 
  Country: None (occurrence: None)
  Receive Date: 20040831
  Receipt Date: 20040831
  Transmission Date: 20050211
  Serious: Yes (Death)
  Sender: FDA-Public Use
  Company Number: None

PATIENT
  Sex: Female
  Weight: 70 kg

DRUGS (19)
  1. FLUDARABINE PHOSPHATE [Suspect]
     Indication: STEM CELL TRANSPLANT
     Dosage: 45 MG DAILY IV
     Route: 042
     Dates: start: 20040525, end: 20040529
  2. MELPHALAN [Suspect]
     Indication: BONE MARROW CONDITIONING REGIMEN
     Dosage: 125 MG IV
     Route: 042
     Dates: start: 20040530
  3. CAMPATH [Suspect]
     Dosage: 20 MG QD IV
     Route: 042
     Dates: start: 20040525, end: 20040529
  4. NEURONTIN [Concomitant]
  5. PROGRAF [Concomitant]
  6. CASOPFUNGIN [Concomitant]
  7. FORINEF [Concomitant]
  8. NUSTATIN [Concomitant]
  9. ACYCLOVIR [Concomitant]
  10. LASIX [Concomitant]
  11. CHOROTHIAZIDE [Concomitant]
  12. CIPRO [Concomitant]
  13. DECADRON [Concomitant]
  14. METHADONE HCL [Concomitant]
  15. VANCOMYCIN [Concomitant]
  16. IMMEPENEN [Concomitant]
  17. VOPRICONAZOLE [Concomitant]
  18. PREVACID [Concomitant]
  19. POTASSIUM CHLORIDE [Concomitant]

REACTIONS (2)
  - GENERAL PHYSICAL HEALTH DETERIORATION [None]
  - RESPIRATORY FAILURE [None]
